FAERS Safety Report 9311679 (Version 1)
Quarter: 2013Q1

REPORT INFORMATION
  Report Type: Spontaneous
  Country: US (occurrence: None)
  Receive Date: 20130225
  Receipt Date: 20130225
  Transmission Date: 20140127
  Serious: Yes (Death, Hospitalization, Other)
  Sender: FDA-Public Use
  Company Number: 141035-2

PATIENT
  Age: 12 Year
  Sex: Female

DRUGS (1)
  1. DAUNORUBICIN HCL [Suspect]
     Indication: ACUTE LYMPHOCYTIC LEUKAEMIA
     Dates: start: 20120723

REACTIONS (12)
  - Cardiac arrest [None]
  - Oedema [None]
  - Encephalopathy [None]
  - Bacteraemia [None]
  - Sepsis [None]
  - Fungaemia [None]
  - Left ventricular dysfunction [None]
  - Rectal haemorrhage [None]
  - Haemoglobin decreased [None]
  - Colitis [None]
  - Large intestinal ulcer [None]
  - Caecitis [None]
